FAERS Safety Report 4442440-0 (Version None)
Quarter: 2004Q3

REPORT INFORMATION
  Report Type: 
  Country: None (occurrence: None)
  Receive Date: 20040903
  Receipt Date: 20040507
  Transmission Date: 20050211
  Serious: Yes (Other)
  Sender: FDA-Public Use
  Company Number: 2004UW09558

PATIENT
  Age: 51 Year
  Sex: Female
  Weight: 104.7809 kg

DRUGS (4)
  1. CRESTOR [Suspect]
     Indication: BLOOD CHOLESTEROL INCREASED
     Dosage: 10 MG DAILY PO
     Route: 048
     Dates: start: 20031101
  2. ZYRTEC [Concomitant]
  3. RHINOCORT [Concomitant]
  4. MULTIVITAMIN [Concomitant]

REACTIONS (2)
  - ALOPECIA [None]
  - PAIN [None]
